FAERS Safety Report 4277246-9 (Version None)
Quarter: 2004Q1

REPORT INFORMATION
  Report Type: 
  Country: None (occurrence: None)
  Receive Date: 20040120
  Receipt Date: 20040120
  Transmission Date: 20041129
  Serious: Yes (Life-Threatening, Hospitalization)
  Sender: FDA-Public Use
  Company Number: None

PATIENT
  Age: 69 Year
  Sex: Female
  Weight: 43.2 kg

DRUGS (2)
  1. ANAKINRA [Suspect]
  2. PREDNISONE [Concomitant]

REACTIONS (1)
  - PNEUMONIA [None]
